FAERS Safety Report 9013965 (Version 1)
Quarter: 2013Q1

REPORT INFORMATION
  Report Type: Spontaneous
  Country: US (occurrence: None)
  Receive Date: 20130109
  Receipt Date: 20130109
  Transmission Date: 20140127
  Serious: Yes (Other)
  Sender: FDA-Public Use
  Company Number: None

PATIENT
  Age: 36 Year
  Sex: Male
  Weight: 74.84 kg

DRUGS (1)
  1. CIPROFLOXACIN, 500 MG, WEST-WARD [Suspect]
     Indication: PROSTATITIS
     Route: 048

REACTIONS (7)
  - Hyperaesthesia [None]
  - Arthralgia [None]
  - Pain in extremity [None]
  - Paraesthesia [None]
  - Abasia [None]
  - Joint crepitation [None]
  - Arthralgia [None]
